FAERS Safety Report 8540655-3 (Version None)
Quarter: 2012Q3

REPORT INFORMATION
  Report Type: 
  Country: None (occurrence: None)
  Receive Date: 20120726
  Receipt Date: 20120717
  Transmission Date: 20120928
  Serious: Yes (Other)
  Sender: FDA-Public Use
  Company Number: US-MILLENNIUM PHARMACEUTICALS, INC.-2012-05027

PATIENT
  Age: 51 Year
  Sex: Female

DRUGS (8)
  1. PREDNISONE [Concomitant]
     Indication: TRANSPLANT REJECTION
     Dosage: 5 MG, QD
  2. CORTICOSTEROIDS [Concomitant]
     Indication: TRANSPLANT REJECTION
  3. MYCOPHENOLIC ACID [Concomitant]
     Indication: TRANSPLANT REJECTION
     Dosage: 180 MG, UNK
     Route: 048
  4. ACYCLOVIR [Concomitant]
     Indication: ANTIVIRAL PROPHYLAXIS
  5. VELCADE [Suspect]
     Indication: TRANSPLANT REJECTION
     Dosage: 1.3 MG/M2, CYCLIC
  6. ANTI-THYMOCYTE GLOBULIN NOS [Concomitant]
     Indication: TRANSPLANT REJECTION
     Dosage: UNK
  7. TACROLIMUS [Concomitant]
     Indication: TRANSPLANT REJECTION
  8. IMMUNE GLOBULIN NOS [Concomitant]
     Indication: TRANSPLANT REJECTION
     Dosage: 200 UNK, UNK

REACTIONS (2)
  - CYTOMEGALOVIRUS COLITIS [None]
  - OESOPHAGEAL CANDIDIASIS [None]
